FAERS Safety Report 6566904-9 (Version None)
Quarter: 2010Q1

REPORT INFORMATION
  Report Type: 
  Country: None (occurrence: None)
  Receive Date: 20100128
  Receipt Date: 20100118
  Transmission Date: 20100710
  Serious: Yes (Other)
  Sender: FDA-Public Use
  Company Number: 10-000082

PATIENT
  Age: 66 Year
  Sex: Female
  Weight: 56.2 kg

DRUGS (2)
  1. ESTRACE [Suspect]
     Indication: HORMONE REPLACEMENT THERAPY
     Dosage: 1 GRAM TWO TIMES WEEKLY, VAGINAL
     Route: 067
     Dates: start: 20091001, end: 20091201
  2. ASPIRIN [Concomitant]

REACTIONS (3)
  - AMNESIA [None]
  - HYPERTENSIVE CRISIS [None]
  - TRANSIENT ISCHAEMIC ATTACK [None]
